FAERS Safety Report 6600500-X (Version None)
Quarter: 2010Q1

REPORT INFORMATION
  Report Type: 
  Country: None (occurrence: None)
  Receive Date: 20100224
  Receipt Date: 20100218
  Transmission Date: 20100710
  Serious: Yes (Other)
  Sender: FDA-Public Use
  Company Number: US-MERCK-0911USA00089

PATIENT
  Sex: Female

DRUGS (5)
  1. ZETIA [Suspect]
     Route: 048
     Dates: start: 20060101
  2. PLAVIX [Concomitant]
     Route: 065
  3. DIOVAN [Concomitant]
     Route: 065
  4. CLARITIN [Concomitant]
     Route: 065
  5. ATIVAN [Concomitant]
     Route: 065

REACTIONS (3)
  - FLATULENCE [None]
  - GALLBLADDER NON-FUNCTIONING [None]
  - MUSCLE SPASMS [None]
